FAERS Safety Report 9263027 (Version 1)
Quarter: 2013Q2

REPORT INFORMATION
  Report Type: Spontaneous
  Country: US (occurrence: None)
  Receive Date: 20130426
  Receipt Date: 20130426
  Transmission Date: 20140414
  Serious: Yes (Hospitalization, Disabling, Other)
  Sender: FDA-Public Use
  Company Number: None

PATIENT
  Age: 68 Year
  Sex: Female
  Weight: 113.4 kg

DRUGS (1)
  1. TOPIRAMATE [Suspect]
     Indication: WEIGHT DECREASED
     Dosage: 1 TAB; INCREASED TAB BID IN 2WKS
     Route: 048
     Dates: start: 20111019, end: 20120119

REACTIONS (1)
  - Cerebrovascular accident [None]
